FAERS Safety Report 6000721-3 (Version None)
Quarter: 2008Q4

REPORT INFORMATION
  Report Type: 
  Country: None (occurrence: None)
  Receive Date: 20081211
  Receipt Date: 20081127
  Transmission Date: 20090506
  Serious: Yes (Other)
  Sender: FDA-Public Use
  Company Number: 2008US002202

PATIENT
  Age: 58 Year
  Sex: Female

DRUGS (12)
  1. PROGRAF [Suspect]
     Indication: RENAL TRANSPLANT
     Dosage: 14 MG, UID/QD,; 10 MG, UID/QD,; 8 MG, UID/QD,
     Dates: start: 20080806, end: 20080808
  2. PROGRAF [Suspect]
     Indication: RENAL TRANSPLANT
     Dosage: 14 MG, UID/QD,; 10 MG, UID/QD,; 8 MG, UID/QD,
     Dates: start: 20080809, end: 20080809
  3. PROGRAF [Suspect]
     Indication: RENAL TRANSPLANT
     Dosage: 14 MG, UID/QD,; 10 MG, UID/QD,; 8 MG, UID/QD,
     Dates: start: 20080811, end: 20080816
  4. RANITIDINE HCL [Concomitant]
  5. AMLODIPINE [Concomitant]
  6. SULFAMETHOXYPYRAZINE/TRIMETHOPRIM (SULFALENE, TRIMETHOPRIM) [Concomitant]
  7. PREDNISOLONE ACETATE [Concomitant]
  8. SIROLIMUS (SIROLIMUS) [Concomitant]
  9. FUROSEMIDE [Concomitant]
  10. ATENOLOL [Concomitant]
  11. ALBENDAZOLE (ALBENDAZOLE) [Concomitant]
  12. CEFALEXIN (CEFALEXIN MONOHYDRATE) [Concomitant]

REACTIONS (3)
  - GRAFT LOSS [None]
  - HAEMODIALYSIS [None]
  - KIDNEY TRANSPLANT REJECTION [None]
